FAERS Safety Report 4569538-0 (Version None)
Quarter: 2005Q1

REPORT INFORMATION
  Report Type: 
  Country: None (occurrence: None)
  Receive Date: 20050201
  Receipt Date: 20050119
  Transmission Date: 20050727
  Serious: No
  Sender: FDA-Public Use
  Company Number: 2004GB03095

PATIENT
  Age: 76 Year
  Sex: Male
  Weight: 73.9363 kg

DRUGS (9)
  1. CRESTOR [Suspect]
     Indication: BLOOD CHOLESTEROL
     Dosage: 10 MG DAILY PO
     Route: 048
     Dates: start: 20040823
  2. COVERSYL /BEL/ [Concomitant]
  3. OMEPRAZOLE [Concomitant]
  4. THYROXINE [Concomitant]
  5. FRUSEMIDE [Concomitant]
  6. BISOPROLOL FUMARATE [Concomitant]
  7. CYPROTERONE ACETATE [Concomitant]
  8. ASPIRIN [Concomitant]
  9. FERROUS SULFATE TAB [Concomitant]

REACTIONS (1)
  - VISUAL DISTURBANCE [None]
